FAERS Safety Report 12591428 (Version 2)
Quarter: 2016Q3

REPORT INFORMATION
  Report Type: Spontaneous
  Country: US (occurrence: US)
  Receive Date: 20160726
  Receipt Date: 20160727
  Transmission Date: 20161109
  Serious: No
  Sender: FDA-Public Use
  Company Number: US-UNITED THERAPEUTICS-UNT-2016-006627

PATIENT
  Age: 74 Year
  Sex: Female
  Weight: 45.81 kg

DRUGS (1)
  1. REMODULIN [Suspect]
     Active Substance: TREPROSTINIL
     Indication: PULMONARY HYPERTENSION
     Dosage: 0.12 ?G/KG, CONTINUING
     Route: 058
     Dates: start: 20100215

REACTIONS (4)
  - Infusion site scar [Unknown]
  - Infusion site nodule [Unknown]
  - Infusion site haemorrhage [Recovered/Resolved]
  - Infusion site discharge [Recovered/Resolved]

NARRATIVE: CASE EVENT DATE: 201604
